FAERS Safety Report 6634004-5 (Version None)
Quarter: 2010Q1

REPORT INFORMATION
  Report Type: 
  Country: None (occurrence: None)
  Receive Date: 20100315
  Receipt Date: 20100303
  Transmission Date: 20100710
  Serious: Yes (Other)
  Sender: FDA-Public Use
  Company Number: PHEH2010US02857

PATIENT
  Sex: Female

DRUGS (1)
  1. VALTURNA [Suspect]
     Dosage: 300/320
     Dates: start: 20100108

REACTIONS (2)
  - BLISTER [None]
  - PEMPHIGOID [None]
